FAERS Safety Report 23733168 (Version 1)
Quarter: 2024Q2

REPORT INFORMATION
  Report Type: Spontaneous
  Country: US (occurrence: US)
  Receive Date: 20240411
  Receipt Date: 20240411
  Transmission Date: 20240716
  Serious: No
  Sender: FDA-Public Use
  Company Number: US-PFIZER INC-202400083202

PATIENT
  Age: 13 Year
  Sex: Male

DRUGS (3)
  1. EUCRISA [Suspect]
     Active Substance: CRISABOROLE
     Indication: Eczema
     Dosage: APPLY ON TWO WEEKS OFF OF STEROID CREAM
     Route: 061
  2. EUCRISA [Suspect]
     Active Substance: CRISABOROLE
     Indication: Skin erosion
  3. EUCRISA [Suspect]
     Active Substance: CRISABOROLE
     Indication: Rash erythematous

REACTIONS (1)
  - Treatment failure [Unknown]
